FAERS Safety Report 8552385-2 (Version None)
Quarter: 2012Q3

REPORT INFORMATION
  Report Type: 
  Country: None (occurrence: None)
  Receive Date: 20120724
  Receipt Date: 20120724
  Transmission Date: 20120928
  Serious: Yes (Life-Threatening)
  Sender: FDA-Public Use
  Company Number: None

PATIENT
  Age: 56 Year
  Sex: Female
  Weight: 81.6475 kg

DRUGS (4)
  1. EFFEXOR XR [Suspect]
     Indication: DEPRESSION
     Dosage: 125 MG 1 DAILY ORAL
     Route: 048
     Dates: start: 20020101, end: 20120201
  2. SEROQUEL [Suspect]
  3. ZYPREXA [Suspect]
     Indication: SCHIZOAFFECTIVE DISORDER
     Dosage: 15 MG 1 DAY ORAL
     Route: 048
  4. LATUDA [Suspect]

REACTIONS (6)
  - BLOOD POTASSIUM INCREASED [None]
  - NECK PAIN [None]
  - TYPE 1 DIABETES MELLITUS [None]
  - RENAL TRANSPLANT [None]
  - BACK PAIN [None]
  - URINARY TRACT INFECTION [None]
